FAERS Safety Report 7038432-8 (Version None)
Quarter: 2010Q4

REPORT INFORMATION
  Report Type: 
  Country: None (occurrence: None)
  Receive Date: 20101011
  Receipt Date: 20100510
  Transmission Date: 20110411
  Serious: Yes (Other)
  Sender: FDA-Public Use
  Company Number: US-PFIZER INC-2010042060

PATIENT
  Age: 55 Year
  Sex: Female
  Weight: 52.154 kg

DRUGS (5)
  1. NEURONTIN [Suspect]
     Indication: DEPRESSION
     Dosage: 100 MG DAILY, AT BEDTIME
     Dates: start: 20100219, end: 20100331
  2. NEURONTIN [Suspect]
     Indication: ANXIETY
  3. NEURONTIN [Suspect]
     Indication: DYSPHORIA
  4. LAMICTAL [Concomitant]
     Dosage: 200MG IN THE MORNING AND 150MG AT BEDTIME
  5. MAXZIDE [Concomitant]
     Indication: BLOOD PRESSURE
     Dosage: UNK
     Dates: end: 20100401

REACTIONS (3)
  - AMNESIA [None]
  - BLOOD PRESSURE INCREASED [None]
  - BLOOD SODIUM DECREASED [None]
